FAERS Safety Report 11844600 (Version 1)
Quarter: 2015Q4

REPORT INFORMATION
  Report Type: Spontaneous
  Country: US (occurrence: US)
  Receive Date: 20151217
  Receipt Date: 20151217
  Transmission Date: 20160305
  Serious: No
  Sender: FDA-Public Use
  Company Number: US-TEVA-601021USA

PATIENT
  Sex: Female
  Weight: 73.55 kg

DRUGS (1)
  1. DULOXETINE. [Suspect]
     Active Substance: DULOXETINE
     Route: 048
     Dates: start: 201505, end: 20150720

REACTIONS (4)
  - Lip swelling [Unknown]
  - Throat tightness [Not Recovered/Not Resolved]
  - Swelling face [Unknown]
  - Dyspnoea [Not Recovered/Not Resolved]

NARRATIVE: CASE EVENT DATE: 2015
